FAERS Safety Report 6408257-2 (Version None)
Quarter: 2009Q4

REPORT INFORMATION
  Report Type: 
  Country: None (occurrence: None)
  Receive Date: 20091021
  Receipt Date: 20091008
  Transmission Date: 20100525
  Serious: Yes (Other)
  Sender: FDA-Public Use
  Company Number: US-PFIZER INC-2009283027

PATIENT
  Sex: Male
  Weight: 70.295 kg

DRUGS (4)
  1. SERTRALINE HCL [Suspect]
     Indication: DEPRESSION
     Dosage: 25 MG, 1X/DAY
     Route: 048
  2. SERTRALINE HCL [Suspect]
     Indication: ANXIETY
  3. ACETYLSALICYLIC ACID [Concomitant]
  4. FISH OIL [Concomitant]

REACTIONS (7)
  - BALANCE DISORDER [None]
  - DISORIENTATION [None]
  - DRUG DOSE OMISSION [None]
  - DRUG INEFFECTIVE [None]
  - HEADACHE [None]
  - MOOD ALTERED [None]
  - NAUSEA [None]
